FAERS Safety Report 22279982 (Version 1)
Quarter: 2023Q2

REPORT INFORMATION
  Report Type: Report from Study
  Country: US (occurrence: US)
  Receive Date: 20230503
  Receipt Date: 20230503
  Transmission Date: 20230721
  Serious: Yes (Other)
  Sender: FDA-Public Use
  Company Number: US-ABBVIE-4748682

PATIENT
  Sex: Female

DRUGS (1)
  1. RINVOQ [Suspect]
     Active Substance: UPADACITINIB
     Indication: Product used for unknown indication
     Dosage: DRUG STOP DATE - 2023
     Route: 048
     Dates: start: 20230104

REACTIONS (2)
  - Hysterectomy [Recovering/Resolving]
  - Eczema [Recovered/Resolved]
